FAERS Safety Report 9695372 (Version 2)
Quarter: 2013Q4

REPORT INFORMATION
  Report Type: Spontaneous
  Country: US (occurrence: US)
  Receive Date: 20131119
  Receipt Date: 20131119
  Transmission Date: 20140711
  Serious: Yes (Other)
  Sender: FDA-Public Use
  Company Number: US-SANOFI-AVENTIS-2013SA085618

PATIENT
  Sex: Male

DRUGS (1)
  1. AMBIEN [Suspect]
     Route: 065

REACTIONS (2)
  - Crime [Unknown]
  - Sleep sex [Unknown]
